FAERS Safety Report 23325564 (Version 1)
Quarter: 2023Q4

REPORT INFORMATION
  Report Type: Report from Study
  Country: IT (occurrence: IT)
  Receive Date: 20231221
  Receipt Date: 20231221
  Transmission Date: 20240110
  Serious: Yes (Hospitalization)
  Sender: FDA-Public Use
  Company Number: None

PATIENT
  Age: 83 Year
  Sex: Male
  Weight: 76 kg

DRUGS (2)
  1. FLUOROURACIL [Suspect]
     Active Substance: FLUOROURACIL
     Indication: Colon cancer
     Dosage: 3570 MG EVERY 21 DAYS
     Dates: start: 20231102, end: 20231102
  2. IRINOTECAN [Suspect]
     Active Substance: IRINOTECAN
     Indication: Colon cancer
     Dosage: 230MG
     Dates: start: 20231102, end: 20231102

REACTIONS (3)
  - Decreased appetite [Unknown]
  - Asthenia [Unknown]
  - Incontinence [Unknown]

NARRATIVE: CASE EVENT DATE: 20231116
